FAERS Safety Report 16689524 (Version 1)
Quarter: 2019Q3

REPORT INFORMATION
  Report Type: Spontaneous
  Country: US (occurrence: US)
  Receive Date: 20190809
  Receipt Date: 20190809
  Transmission Date: 20191004
  Serious: Yes (Hospitalization, Other)
  Sender: FDA-Public Use
  Company Number: US-SA-2019SA210068

PATIENT
  Age: 14 Month
  Sex: Male

DRUGS (1)
  1. ALPROLIX [Suspect]
     Active Substance: EFTRENONACOG ALFA
     Indication: FACTOR IX DEFICIENCY
     Dosage: 1100 IU, QW
     Route: 065
     Dates: start: 201901, end: 20190730

REACTIONS (9)
  - Cyanosis [Unknown]
  - Anaphylactic reaction [Unknown]
  - Factor IX inhibition [Unknown]
  - Oxygen saturation decreased [Unknown]
  - Hypotension [Unknown]
  - Unevaluable event [Unknown]
  - Coagulation factor IX level decreased [Unknown]
  - Respiratory rate decreased [Unknown]
  - Swelling face [Unknown]

NARRATIVE: CASE EVENT DATE: 20190730
